FAERS Safety Report 7716332-5 (Version None)
Quarter: 2011Q3

REPORT INFORMATION
  Report Type: 
  Country: None (occurrence: None)
  Receive Date: 20110829
  Receipt Date: 20110818
  Transmission Date: 20111222
  Serious: Yes (Congenital Anomaly, Other)
  Sender: FDA-Public Use
  Company Number: PHHY2011FR74350

PATIENT
  Sex: Female

DRUGS (2)
  1. TEGRETOL [Suspect]
     Dosage: MATERNAL DOSE: 800 MG, DAILY
     Route: 064
  2. TOPIRAMATE [Suspect]
     Dosage: 200 MG, DAILY : MATERNAL DOSE
     Route: 064

REACTIONS (8)
  - EAR MALFORMATION [None]
  - UMBILICAL HERNIA [None]
  - HYPOTONIA [None]
  - DISTURBANCE IN ATTENTION [None]
  - CONGENITAL NAEVUS [None]
  - CONGENITAL FOOT MALFORMATION [None]
  - GAIT DISTURBANCE [None]
  - SPEECH DISORDER DEVELOPMENTAL [None]
